FAERS Safety Report 17928583 (Version 1)
Quarter: 2020Q2

REPORT INFORMATION
  Report Type: Spontaneous
  Country: US (occurrence: US)
  Receive Date: 20200622
  Receipt Date: 20200622
  Transmission Date: 20200714
  Serious: No
  Sender: FDA-Public Use
  Company Number: None

PATIENT
  Age: 31 Year
  Sex: Male

DRUGS (2)
  1. BUPRENORPHINE (BUPRENORPHINE 300MG/1.5ML INJ, SA, SYRINGE, 1.5ML [Suspect]
     Active Substance: BUPRENORPHINE HYDROCHLORIDE
     Indication: DRUG USE DISORDER
     Dosage: ?          OTHER FREQUENCY:UNKNOWN;?
     Route: 058
     Dates: start: 20200227, end: 20200227
  2. BUPRENORPHINE (BUPRENORPHINE 300MG/1.5ML INJ, SA, SYRINGE, 1.5ML [Suspect]
     Active Substance: BUPRENORPHINE HYDROCHLORIDE
     Indication: PAIN
     Dosage: ?          OTHER FREQUENCY:UNKNOWN;?
     Route: 058
     Dates: start: 20200227, end: 20200227

REACTIONS (6)
  - Hyperhidrosis [None]
  - Erythema multiforme [None]
  - Skin exfoliation [None]
  - Flushing [None]
  - Abdominal pain [None]
  - Injection site pain [None]

NARRATIVE: CASE EVENT DATE: 20200227
